FAERS Safety Report 25007857 (Version 2)
Quarter: 2025Q1

REPORT INFORMATION
  Report Type: Report from Study
  Country: CA (occurrence: CA)
  Receive Date: 20250225
  Receipt Date: 20250320
  Transmission Date: 20250409
  Serious: Yes (Other)
  Sender: TAKEDA
  Company Number: CA-TAKEDA-2023TUS115772

PATIENT
  Age: 67 Year
  Sex: Male

DRUGS (7)
  1. VEDOLIZUMAB [Suspect]
     Active Substance: VEDOLIZUMAB
     Indication: Colitis ulcerative
  2. VEDOLIZUMAB [Suspect]
     Active Substance: VEDOLIZUMAB
  3. VEDOLIZUMAB [Suspect]
     Active Substance: VEDOLIZUMAB
     Dosage: 300 MILLIGRAM, Q4WEEKS
     Dates: start: 20250314
  4. ATORVASTATIN [Concomitant]
     Active Substance: ATORVASTATIN
  5. SULFASALAZINE [Concomitant]
     Active Substance: SULFASALAZINE
  6. PERINDOPRIL [Concomitant]
     Active Substance: PERINDOPRIL
  7. PENTASA [Concomitant]
     Active Substance: MESALAMINE

REACTIONS (6)
  - Large intestinal stenosis [Unknown]
  - Gastrointestinal inflammation [Unknown]
  - Diarrhoea [Not Recovered/Not Resolved]
  - Frequent bowel movements [Not Recovered/Not Resolved]
  - Abdominal pain [Not Recovered/Not Resolved]
  - Off label use [Unknown]

NARRATIVE: CASE EVENT DATE: 20250314
